FAERS Safety Report 6723196-5 (Version None)
Quarter: 2010Q2

REPORT INFORMATION
  Report Type: 
  Country: None (occurrence: None)
  Receive Date: 20100513
  Receipt Date: 20100503
  Transmission Date: 20101027
  Serious: Yes (Hospitalization, Other)
  Sender: FDA-Public Use
  Company Number: US-JNJFOC-20100502753

PATIENT

DRUGS (1)
  1. LEVAQUIN [Suspect]
     Indication: INFECTION
     Route: 065

REACTIONS (4)
  - JOINT INJURY [None]
  - TENDON DISORDER [None]
  - TENDON RUPTURE [None]
  - TENDONITIS [None]
